FAERS Safety Report 9240257 (Version 6)
Quarter: 2014Q2

REPORT INFORMATION
  Report Type: Spontaneous
  Country: US (occurrence: US)
  Receive Date: 20130418
  Receipt Date: 20140522
  Transmission Date: 20141212
  Serious: Yes (Other)
  Sender: FDA-Public Use
  Company Number: US-009507513-1304USA008304

PATIENT
  Sex: Male
  Weight: 78.5 kg

DRUGS (2)
  1. PROPECIA [Suspect]
     Indication: ALOPECIA
     Dosage: 1 MG, UNK
     Route: 048
     Dates: start: 2001, end: 2003
  2. FINASTERIDE [Suspect]
     Indication: ALOPECIA
     Dosage: 1 MG, UNK
     Route: 048
     Dates: start: 2001, end: 2003

REACTIONS (20)
  - Surgery [Unknown]
  - Peyronie^s disease [Not Recovered/Not Resolved]
  - Cognitive disorder [Not Recovered/Not Resolved]
  - Sleep disorder [Not Recovered/Not Resolved]
  - Appendicitis [Unknown]
  - Appendicitis [Unknown]
  - Appendicectomy [Unknown]
  - Post procedural haemorrhage [Unknown]
  - Transfusion [Unknown]
  - Rhinorrhoea [Unknown]
  - Abdominal pain upper [Unknown]
  - Blood pressure increased [Unknown]
  - Sexual dysfunction [Not Recovered/Not Resolved]
  - Depression [Not Recovered/Not Resolved]
  - Libido decreased [Not Recovered/Not Resolved]
  - Dyspnoea [Unknown]
  - Dyspepsia [Unknown]
  - Arthralgia [Unknown]
  - Anxiety [Unknown]
  - Penis injury [Unknown]
